FAERS Safety Report 15375981 (Version 2)
Quarter: 2018Q3

REPORT INFORMATION
  Report Type: Report from Study
  Country: US (occurrence: US)
  Receive Date: 20180912
  Receipt Date: 20180917
  Transmission Date: 20181010
  Serious: Yes (Hospitalization, Other)
  Sender: FDA-Public Use
  Company Number: US-GILEAD-2018-0353273

PATIENT
  Age: 69 Year
  Sex: Female

DRUGS (3)
  1. IDELALISIB [Suspect]
     Active Substance: IDELALISIB
     Indication: CHRONIC LYMPHOCYTIC LEUKAEMIA
     Dosage: 150 MG, BID
     Route: 048
     Dates: start: 20180529
  2. IDELALISIB [Suspect]
     Active Substance: IDELALISIB
     Indication: FOLLICLE CENTRE LYMPHOMA DIFFUSE SMALL CELL LYMPHOMA
     Dosage: 150 MG, BID
     Route: 048
     Dates: start: 20180609, end: 20180829
  3. IVIGLOB EX [Concomitant]
     Active Substance: HUMAN IMMUNOGLOBULIN G
     Indication: B-CELL LYMPHOMA
     Dosage: ONCE PER MONTH
     Dates: start: 201806

REACTIONS (21)
  - Blood potassium decreased [Unknown]
  - Increased appetite [Unknown]
  - Hypersensitivity [Not Recovered/Not Resolved]
  - Rash pruritic [Recovering/Resolving]
  - Stomatitis [Unknown]
  - Diarrhoea [Unknown]
  - Pyrexia [Not Recovered/Not Resolved]
  - Urticaria [Recovering/Resolving]
  - Eating disorder [Not Recovered/Not Resolved]
  - Swollen tongue [Recovering/Resolving]
  - White blood cell count decreased [Unknown]
  - Salmonellosis [Unknown]
  - Halo vision [Not Recovered/Not Resolved]
  - Weight increased [Unknown]
  - Muscle spasms [Not Recovered/Not Resolved]
  - Vomiting [Not Recovered/Not Resolved]
  - Retching [Not Recovered/Not Resolved]
  - Eye swelling [Recovering/Resolving]
  - Aphthous ulcer [Recovering/Resolving]
  - Productive cough [Not Recovered/Not Resolved]
  - Abdominal discomfort [Not Recovered/Not Resolved]

NARRATIVE: CASE EVENT DATE: 201807
